FAERS Safety Report 23549594 (Version 1)
Quarter: 2024Q1

REPORT INFORMATION
  Report Type: Spontaneous
  Country: US (occurrence: None)
  Receive Date: 20240220
  Receipt Date: 20240220
  Transmission Date: 20240409
  Serious: Yes (Hospitalization)
  Sender: FDA-Public Use
  Company Number: None

PATIENT
  Sex: Male

DRUGS (10)
  1. JANSSEN COVID-19 VACCINE [Suspect]
     Active Substance: AD26.COV2.S
  2. TREMFYA [Suspect]
     Active Substance: GUSELKUMAB
  3. SKYRIZI [Suspect]
     Active Substance: RISANKIZUMAB-RZAA
  4. DUPIXENT [Concomitant]
     Active Substance: DUPILUMAB
  5. CLOBETASOL PROPIONATE EMO [Concomitant]
  6. HYDROXYZINE HYDROCHLORIDE [Concomitant]
     Active Substance: HYDROXYZINE HYDROCHLORIDE
  7. DESLORATADINE [Concomitant]
     Active Substance: DESLORATADINE
  8. CETIRIZINE HCL [Concomitant]
     Active Substance: CETIRIZINE HYDROCHLORIDE
  9. VITAMINS [Concomitant]
     Active Substance: VITAMINS
  10. CALCIPOTRIENE [Concomitant]
     Active Substance: CALCIPOTRIENE

REACTIONS (5)
  - Off label use [None]
  - Drug dose titration not performed [None]
  - COVID-19 immunisation [None]
  - Vaccination complication [None]
  - Hospitalisation [None]
